FAERS Safety Report 8107564-5 (Version None)
Quarter: 2012Q1

REPORT INFORMATION
  Report Type: 
  Country: None (occurrence: None)
  Receive Date: 20120202
  Receipt Date: 20120123
  Transmission Date: 20120608
  Serious: Yes (Other)
  Sender: FDA-Public Use
  Company Number: JP-ROCHE-1034187

PATIENT
  Age: 6 Decade
  Sex: Female

DRUGS (13)
  1. AVASTIN [Suspect]
     Indication: LARGE INTESTINE CARCINOMA
     Route: 041
  2. LEVOLEUCOVORIN CALCIUM [Concomitant]
     Dosage: DOSAGE IS UNCERTAIN.
     Route: 041
  3. FLUOROURACIL [Concomitant]
     Dosage: DOSAGE IS UNCERTAIN.
     Route: 041
  4. FLUOROURACIL [Concomitant]
     Dosage: DOSAGE IS UNCERTAIN.
     Route: 041
  5. OXALIPLATIN [Concomitant]
     Indication: LARGE INTESTINE CARCINOMA
     Dosage: DOSAGE IS UNCERTAIN.
     Route: 041
  6. LEVOLEUCOVORIN CALCIUM [Concomitant]
     Dosage: DOSAGE IS UNCERTAIN.
     Route: 041
  7. FLUOROURACIL [Concomitant]
     Dosage: DOSAGE IS UNCERTAIN.
     Route: 040
  8. FLUOROURACIL [Concomitant]
     Dosage: DOSAGE IS UNCERTAIN.
     Route: 040
  9. LEVOLEUCOVORIN CALCIUM [Concomitant]
     Indication: LARGE INTESTINE CARCINOMA
     Dosage: DOSAGE IS UNCERTAIN.
     Route: 041
  10. FLUOROURACIL [Concomitant]
     Dosage: DOSAGE IS UNCERTAIN.
     Route: 041
  11. OXALIPLATIN [Concomitant]
     Dosage: DOSAGE IS UNCERTAIN.
     Route: 041
  12. IRINOTECAN HCL [Concomitant]
     Indication: LARGE INTESTINE CARCINOMA
     Dosage: DOSAGE IS UNCERTAIN.
     Route: 041
  13. FLUOROURACIL [Concomitant]
     Indication: LARGE INTESTINE CARCINOMA
     Dosage: DOSAGE IS UNCERTAIN.
     Route: 040

REACTIONS (2)
  - VASCULITIS [None]
  - HYPOAESTHESIA [None]
